FAERS Safety Report 15173050 (Version 10)
Quarter: 2018Q4

REPORT INFORMATION
  Report Type: Report from Study
  Country: KR (occurrence: KR)
  Receive Date: 20180720
  Receipt Date: 20181115
  Transmission Date: 20190204
  Serious: Yes (Hospitalization)
  Sender: FDA-Public Use
  Company Number: KR-PFIZER INC-2018287634

PATIENT
  Age: 78 Year
  Sex: Female
  Weight: 52 kg

DRUGS (20)
  1. TRAMADOL HYDROCHLORIDE. [Concomitant]
     Active Substance: TRAMADOL HYDROCHLORIDE
     Indication: ABDOMINAL PAIN
     Dosage: 50 MG, UNK
     Dates: start: 20180711, end: 20180711
  2. TAZOPERAN [Concomitant]
     Dosage: 4.5 G, UNK
     Dates: start: 20180711, end: 20180711
  3. PEMBROLIZUMAB. [Suspect]
     Active Substance: PEMBROLIZUMAB
     Indication: RENAL CELL CARCINOMA
     Dosage: 200 MG, EVERY 3 WEEKS (Q3W) (VOLUME OF INFUSION: 108 ML)
     Route: 042
     Dates: start: 20161116, end: 20180620
  4. GALVUS [Concomitant]
     Active Substance: VILDAGLIPTIN
     Dosage: 50 MG, UNK
     Route: 048
     Dates: start: 20161124
  5. FURACILIN [Concomitant]
     Indication: PROPHYLAXIS
     Dosage: 500 MG, UNK
     Dates: start: 20180711, end: 20180711
  6. PEMBROLIZUMAB. [Suspect]
     Active Substance: PEMBROLIZUMAB
     Dosage: 200 MG, EVERY 3 WEEKS (Q3W) (CYCLE 29)
     Route: 042
     Dates: start: 20180710, end: 20180710
  7. PEMBROLIZUMAB. [Suspect]
     Active Substance: PEMBROLIZUMAB
     Dosage: 200 MG, EVERY 3 WEEKS
     Route: 042
     Dates: start: 20180802
  8. PLAVITOR [Concomitant]
     Dosage: 75 MG, UNK
     Route: 048
     Dates: start: 20161124
  9. AMLODIPINE/TELMISARTAN [Concomitant]
     Dosage: 1 DF, UNK
     Route: 048
     Dates: start: 20171123
  10. AXITINIB [Suspect]
     Active Substance: AXITINIB
     Indication: RENAL CELL CARCINOMA
     Dosage: 5 MG, 2X/DAY, (STARTING DOSE AT 5 MG BID, FLUCTUATED DOSES)
     Route: 048
     Dates: start: 20161116, end: 20180619
  11. AXITINIB [Suspect]
     Active Substance: AXITINIB
     Dosage: 5 MG, 2X/DAY, CYCLIC
     Route: 048
     Dates: start: 20180620, end: 20180709
  12. SYNTHROID [Concomitant]
     Active Substance: LEVOTHYROXINE SODIUM
     Dosage: 0.075 MG, UNK
     Route: 048
     Dates: start: 20170617
  13. TAZOPERAN [Concomitant]
     Indication: PROPHYLAXIS
     Dosage: 2.25 G, UNK
     Dates: start: 20180711, end: 20180711
  14. OMAP ONE PERI [Concomitant]
     Dosage: 724 ML, UNK
     Dates: start: 20180711, end: 20180711
  15. PHOSTEN [Concomitant]
     Dosage: 2722 MG, UNK
     Dates: start: 20180711, end: 20180711
  16. PENIRAMIN [Concomitant]
     Dosage: 4 MG, UNK
     Dates: start: 20180711, end: 20180711
  17. AXITINIB [Suspect]
     Active Substance: AXITINIB
     Dosage: 5 MG, 2X/DAY, CYCLIC
     Route: 048
     Dates: start: 20180802
  18. HIROXON [Concomitant]
     Dosage: 15 MG, UNK
     Route: 048
     Dates: start: 20170628
  19. DENOGAN [Concomitant]
     Active Substance: PROPACETAMOL HYDROCHLORIDE
     Dosage: 1 G, UNK
     Dates: start: 20180710, end: 20180710
  20. CORTISOLU [Concomitant]
     Active Substance: HYDROCORTISONE SODIUM SUCCINATE
     Dosage: 50 MG, UNK
     Dates: start: 20180711, end: 20180711

REACTIONS (3)
  - Cytopenia [Recovered/Resolved]
  - Alanine aminotransferase increased [Recovered/Resolved]
  - Aspartate aminotransferase increased [Recovered/Resolved]

NARRATIVE: CASE EVENT DATE: 20180711
